FAERS Safety Report 24154595 (Version 1)
Quarter: 2024Q3

REPORT INFORMATION
  Report Type: Spontaneous
  Country: US (occurrence: US)
  Receive Date: 20240731
  Receipt Date: 20240731
  Transmission Date: 20241016
  Serious: Yes (Other)
  Sender: AMGEN
  Company Number: US-AMGEN-USASP2024147873

PATIENT
  Age: 72 Year
  Sex: Male

DRUGS (7)
  1. PREDNISONE [Suspect]
     Active Substance: PREDNISONE
     Indication: Pneumonitis
     Dosage: 40 MILLIGRAM, QD
     Route: 048
  2. PREDNISONE [Suspect]
     Active Substance: PREDNISONE
     Indication: Radiation pneumonitis
     Dosage: UNK, STARTED ON MODERATE-DOSE PREDNISONE AGAIN
     Route: 065
  3. CARBOPLATIN\PACLITAXEL [Concomitant]
     Active Substance: CARBOPLATIN\PACLITAXEL
     Indication: Non-small cell lung cancer
     Dosage: UNK
     Route: 065
  4. OSELTAMIVIR [Concomitant]
     Active Substance: OSELTAMIVIR
     Indication: Pneumonitis
     Dosage: UNK
     Route: 065
  5. OSELTAMIVIR [Concomitant]
     Active Substance: OSELTAMIVIR
     Indication: Radiation pneumonitis
  6. METHYLPREDNISOLONE [Concomitant]
     Active Substance: METHYLPREDNISOLONE
     Indication: Pneumonitis
     Dosage: 60 MILLIGRAM, QD
     Route: 042
  7. METHYLPREDNISOLONE [Concomitant]
     Active Substance: METHYLPREDNISOLONE
     Indication: Radiation pneumonitis

REACTIONS (4)
  - Non-small cell lung cancer metastatic [Unknown]
  - Pneumonitis [Unknown]
  - Radiation pneumonitis [Unknown]
  - Off label use [Unknown]
